FAERS Safety Report 7167046-4 (Version None)
Quarter: 2010Q4

REPORT INFORMATION
  Report Type: 
  Country: None (occurrence: None)
  Receive Date: 20101216
  Receipt Date: 20101213
  Transmission Date: 20110411
  Serious: Yes (Other)
  Sender: FDA-Public Use
  Company Number: B0688628A

PATIENT
  Age: 29 Year
  Sex: Male

DRUGS (9)
  1. SALBUTAMOL [Suspect]
  2. XOLAIR [Suspect]
     Route: 058
     Dates: start: 20100114, end: 20100509
  3. THEOPHYLLINE [Concomitant]
     Route: 048
  4. CETIRIZINE HCL [Concomitant]
     Route: 048
  5. PREDNISOLONE [Concomitant]
     Route: 048
  6. LANSOPRAZOLE [Concomitant]
     Route: 048
  7. RANITIDINE [Concomitant]
     Route: 048
  8. ZAFIRLUKAST [Concomitant]
     Route: 048
  9. SERETIDE [Concomitant]
     Dosage: 2000MCG PER DAY

REACTIONS (7)
  - ANAPHYLACTIC REACTION [None]
  - CHEST DISCOMFORT [None]
  - HYPERSENSITIVITY [None]
  - HYPERVENTILATION [None]
  - PRURITUS [None]
  - TYPE I HYPERSENSITIVITY [None]
  - WHEEZING [None]
